FAERS Safety Report 10031456 (Version 3)
Quarter: 2014Q2

REPORT INFORMATION
  Report Type: Spontaneous
  Country: JP (occurrence: JP)
  Receive Date: 20140324
  Receipt Date: 20140502
  Transmission Date: 20141212
  Serious: Yes (Death, Other)
  Sender: FDA-Public Use
  Company Number: JP-SA-2014SA032520

PATIENT
  Age: 80 Year
  Sex: Male
  Weight: 54.9 kg

DRUGS (4)
  1. LANTUS [Suspect]
     Indication: TYPE 1 DIABETES MELLITUS
     Dosage: DOSE:16 UNIT(S)
     Route: 058
     Dates: start: 2007, end: 20130328
  2. NOVORAPID [Suspect]
     Indication: TYPE 1 DIABETES MELLITUS
     Dosage: DOSE:22 UNIT(S)
     Route: 058
     Dates: start: 2007
  3. INSULIN GLARGINE [Suspect]
     Indication: TYPE 1 DIABETES MELLITUS
     Dosage: DOSE: 11-14UNITS
     Route: 058
     Dates: start: 20130329, end: 20140226
  4. SOLOSTAR [Concomitant]

REACTIONS (1)
  - Metastases to liver [Fatal]
